FAERS Safety Report 8567727-1 (Version None)
Quarter: 2012Q3

REPORT INFORMATION
  Report Type: 
  Country: None (occurrence: None)
  Receive Date: 20120803
  Receipt Date: 20120727
  Transmission Date: 20120928
  Serious: Yes (Hospitalization)
  Sender: FDA-Public Use
  Company Number: JP-009507513-1207JPN012646

PATIENT

DRUGS (7)
  1. REBETOL [Suspect]
     Route: 048
     Dates: start: 20120606
  2. REBETOL [Suspect]
     Indication: HEPATITIS C
     Route: 048
     Dates: start: 20120418, end: 20120605
  3. TELAVIC [Suspect]
     Route: 048
     Dates: start: 20120627, end: 20120703
  4. PEG-INTRON [Suspect]
     Indication: HEPATITIS C
     Dosage: 1.5G/KG/WEEK
     Route: 058
     Dates: start: 20120418
  5. XYZAL [Concomitant]
     Indication: PROPHYLAXIS
     Route: 048
     Dates: start: 20120412
  6. SELBEX [Concomitant]
     Indication: PROPHYLAXIS
     Route: 048
     Dates: start: 20120418
  7. TELAVIC [Suspect]
     Indication: HEPATITIS C
     Route: 048
     Dates: start: 20120418, end: 20120626

REACTIONS (1)
  - ANAEMIA [None]
